FAERS Safety Report 6284985-7 (Version None)
Quarter: 2009Q3

REPORT INFORMATION
  Report Type: 
  Country: None (occurrence: None)
  Receive Date: 20090727
  Receipt Date: 20090226
  Transmission Date: 20100115
  Serious: No
  Sender: FDA-Public Use
  Company Number: US-ABBOTT-09P-163-0560157-00

PATIENT
  Age: 19 Year
  Sex: Female

DRUGS (2)
  1. RITONAVIR SOFT GELATIN CAPSULES [Suspect]
     Indication: HIV TEST POSITIVE
     Dosage: 100MG 2 CAPSULES BID
     Route: 048
     Dates: start: 20070101
  2. APTIVUS [Suspect]
     Indication: HIV TEST POSITIVE
     Dosage: 250MG 2 CAPSULES BID
     Route: 048
     Dates: start: 20070101

REACTIONS (1)
  - DRUG SCREEN FALSE POSITIVE [None]
